FAERS Safety Report 21937409 (Version 1)
Quarter: 2023Q1

REPORT INFORMATION
  Report Type: Spontaneous
  Country: GB (occurrence: None)
  Receive Date: 20230201
  Receipt Date: 20230201
  Transmission Date: 20230417
  Serious: Yes (Other)
  Sender: FDA-Public Use
  Company Number: 2023A022628

PATIENT
  Age: 79 Year
  Sex: Female
  Weight: 68 kg

DRUGS (13)
  1. DAPAGLIFLOZIN [Suspect]
     Active Substance: DAPAGLIFLOZIN
     Indication: Type 2 diabetes mellitus
     Dosage: EVERY MORNING
     Route: 048
     Dates: start: 20221228
  2. ADCAL [Concomitant]
     Dosage: 1
     Dates: start: 20220623
  3. ALLOPURINOL [Concomitant]
     Active Substance: ALLOPURINOL
     Dosage: 2
     Dates: start: 20220623
  4. APIXABAN [Concomitant]
     Active Substance: APIXABAN
     Dosage: 1
     Dates: start: 20220623
  5. ATORVASTATIN [Concomitant]
     Active Substance: ATORVASTATIN
     Dosage: EACH EVENING
     Dates: start: 20220623
  6. BISOPROLOL [Concomitant]
     Active Substance: BISOPROLOL
     Dosage: 1
     Dates: start: 20220623
  7. FAMOTIDINE [Concomitant]
     Active Substance: FAMOTIDINE
     Dosage: EACH EVENING
     Dates: start: 20220623
  8. FERROUS FUMARATE [Concomitant]
     Active Substance: FERROUS FUMARATE
     Dosage: 1
     Dates: start: 20220803
  9. GABAPENTIN [Concomitant]
     Active Substance: GABAPENTIN
     Dosage: EACH MORNING
     Dates: start: 20220623
  10. LINAGLIPTIN [Concomitant]
     Active Substance: LINAGLIPTIN
     Dosage: EACH MORNING
     Dates: start: 20220623
  11. POLYETHYLENE GLYCOLS [Concomitant]
     Active Substance: POLYETHYLENE GLYCOLS
     Indication: Constipation
     Dosage: ONE SACHET ONCE OR TWICE DAILY
     Dates: start: 20220623
  12. MIRTAZAPINE [Concomitant]
     Active Substance: MIRTAZAPINE
     Dosage: EACH EVENING
     Dates: start: 20220623
  13. ACETAMINOPHEN [Concomitant]
     Active Substance: ACETAMINOPHEN
     Indication: Pain management
     Dosage: 2
     Dates: start: 20220623

REACTIONS (1)
  - Hallucination, visual [Recovered/Resolved]
